FAERS Safety Report 22523772 (Version 1)
Quarter: 2023Q2

REPORT INFORMATION
  Report Type: Spontaneous
  Country: US (occurrence: US)
  Receive Date: 20230606
  Receipt Date: 20230606
  Transmission Date: 20230722
  Serious: No
  Sender: FDA-Public Use
  Company Number: US-JNJFOC-20230565761

PATIENT
  Sex: Female

DRUGS (1)
  1. TYLENOL 8 HR ARTHRITIS PAIN [Suspect]
     Active Substance: ACETAMINOPHEN
     Indication: Product used for unknown indication
     Dosage: WAS TAKING IT 3 A DAY. BUT NOW ONLY TAKING 1 A DAY
     Route: 065

REACTIONS (2)
  - Liver disorder [Unknown]
  - Incorrect dose administered [Unknown]
